FAERS Safety Report 6900346-9 (Version None)
Quarter: 2010Q3

REPORT INFORMATION
  Report Type: 
  Country: None (occurrence: None)
  Receive Date: 20100803
  Receipt Date: 20100722
  Transmission Date: 20110219
  Serious: Yes (Hospitalization)
  Sender: FDA-Public Use
  Company Number: PHFR2010GB01048

PATIENT
  Sex: Male

DRUGS (2)
  1. CLOZARIL [Suspect]
     Indication: SCHIZOPHRENIA
     Dosage: UNK
     Route: 048
     Dates: start: 20090918
  2. CLOZARIL [Suspect]
     Dosage: UNK
     Route: 048

REACTIONS (3)
  - EYE INFECTION [None]
  - EYE INJURY [None]
  - MENTAL IMPAIRMENT [None]
